FAERS Safety Report 6547566-3 (Version None)
Quarter: 2010Q1

REPORT INFORMATION
  Report Type: 
  Country: None (occurrence: None)
  Receive Date: 20100122
  Receipt Date: 20100115
  Transmission Date: 20100710
  Serious: Yes (Death)
  Sender: FDA-Public Use
  Company Number: US-JNJFOC-20100105556

PATIENT
  Age: 18 Year
  Sex: Male

DRUGS (4)
  1. TRAMADOL [Suspect]
     Indication: SUICIDE ATTEMPT
     Route: 048
  2. DIAZEPAM [Suspect]
     Indication: SUICIDE ATTEMPT
     Route: 048
  3. ESCITALOPRAM [Suspect]
     Indication: SUICIDE ATTEMPT
     Route: 048
  4. PAROXETINE HCL [Suspect]
     Indication: SUICIDE ATTEMPT
     Route: 048

REACTIONS (2)
  - COMPLETED SUICIDE [None]
  - DRUG TOXICITY [None]
